FAERS Safety Report 23940141 (Version 1)
Quarter: 2024Q2

REPORT INFORMATION
  Report Type: Spontaneous
  Country: IT (occurrence: IT)
  Receive Date: 20240605
  Receipt Date: 20240605
  Transmission Date: 20240717
  Serious: Yes (Hospitalization)
  Sender: FDA-Public Use
  Company Number: IT-EMA-DD-20240523-7482663-061403

PATIENT
  Age: 10 Year
  Sex: Male

DRUGS (1)
  1. RISPERIDONE [Suspect]
     Active Substance: RISPERIDONE
     Indication: Product used for unknown indication
     Dosage: 4 MILLIGRAM, ONCE (ONE ADMINISTRATION)
     Route: 048

REACTIONS (3)
  - Somnolence [Recovered/Resolved]
  - Tremor [Recovered/Resolved]
  - Accidental overdose [Unknown]
